FAERS Safety Report 20843545 (Version 2)
Quarter: 2022Q2

REPORT INFORMATION
  Report Type: Spontaneous
  Country: US (occurrence: US)
  Receive Date: 20220518
  Receipt Date: 20220630
  Transmission Date: 20220720
  Serious: Yes (Hospitalization, Other)
  Sender: FDA-Public Use
  Company Number: US-BRISTOL-MYERS SQUIBB COMPANY-2022-025979

PATIENT
  Age: 84 Year
  Sex: Female

DRUGS (3)
  1. THALOMID [Suspect]
     Active Substance: THALIDOMIDE
     Indication: Plasma cell myeloma
     Route: 048
     Dates: start: 20220330
  2. THALOMID [Suspect]
     Active Substance: THALIDOMIDE
     Indication: Bone cancer
  3. REVLIMID [Suspect]
     Active Substance: LENALIDOMIDE
     Indication: Plasma cell myeloma
     Route: 048
     Dates: start: 20211228, end: 20220330

REACTIONS (6)
  - Hypoaesthesia [Unknown]
  - Joint swelling [Unknown]
  - Constipation [Unknown]
  - Headache [Unknown]
  - Cerebrovascular accident [Unknown]
  - Tooth abscess [Unknown]

NARRATIVE: CASE EVENT DATE: 20220615
